FAERS Safety Report 7081972-6 (Version None)
Quarter: 2010Q4

REPORT INFORMATION
  Report Type: 
  Country: None (occurrence: None)
  Receive Date: 20101103
  Receipt Date: 20101022
  Transmission Date: 20110411
  Serious: Yes (Hospitalization, Other)
  Sender: FDA-Public Use
  Company Number: FR-PFIZER INC-2010134570

PATIENT
  Age: 70 Year
  Sex: Female

DRUGS (8)
  1. LYRICA [Suspect]
     Indication: NEUROPATHY PERIPHERAL
     Dosage: 100 MG, 3X/DAY
  2. XANAX [Concomitant]
  3. FEMARA [Concomitant]
     Indication: HORMONE THERAPY
  4. KARDEGIC [Concomitant]
  5. EUPANTOL [Concomitant]
  6. VERAPAMIL [Concomitant]
  7. CLASTOBAN [Concomitant]
  8. SOLUPRED [Concomitant]
     Dosage: 60 MG/DAY
     Dates: start: 20100401, end: 20101004

REACTIONS (2)
  - HYPOKALAEMIA [None]
  - HYPONATRAEMIA [None]
